FAERS Safety Report 5291416-2 (Version None)
Quarter: 2007Q2

REPORT INFORMATION
  Report Type: 
  Country: None (occurrence: None)
  Receive Date: 20070402
  Receipt Date: 20070319
  Transmission Date: 20071010
  Serious: Yes (Death, Hospitalization)
  Sender: FDA-Public Use
  Company Number: 2007SP003933

PATIENT
  Sex: Male
  Weight: 59.8 kg

DRUGS (23)
  1. POSACONAZOLE [Suspect]
     Indication: FUNGAL INFECTION
     Dosage: 400 MG;BID;PO
     Route: 048
     Dates: start: 20070215, end: 20070226
  2. CODEINE [Concomitant]
  3. ATARAX [Concomitant]
  4. LORAZEPAM [Concomitant]
  5. K-LYTE [Concomitant]
  6. OLANZAPINE [Concomitant]
  7. BENADRYL [Concomitant]
  8. LINEZOLID [Concomitant]
  9. CIPROFLOXACIN [Concomitant]
  10. MEROPENEM [Concomitant]
  11. ASPIRIN [Concomitant]
  12. GLYCOPYRROLATE [Concomitant]
  13. FRAGMIN [Concomitant]
  14. SLOW-K [Concomitant]
  15. VORICONAZOLE [Concomitant]
  16. AMBISOME [Concomitant]
  17. TYLENOL [Concomitant]
  18. VITAMIN K [Concomitant]
  19. PIPERACILLIN SODIUM W/TAZOBACTAM [Concomitant]
  20. CASPOFUNGIN [Concomitant]
  21. K-LYTE [Concomitant]
  22. THIAMINE [Concomitant]
  23. IMOVANE [Concomitant]

REACTIONS (4)
  - CARDIO-RESPIRATORY ARREST [None]
  - LUNG INFECTION [None]
  - PULMONARY HAEMORRHAGE [None]
  - ZYGOMYCOSIS [None]
